FAERS Safety Report 23463501 (Version 1)
Quarter: 2024Q1

REPORT INFORMATION
  Report Type: Report from Study
  Country: CA (occurrence: CA)
  Receive Date: 20240131
  Receipt Date: 20240131
  Transmission Date: 20240410
  Serious: Yes (Other)
  Sender: FDA-Public Use
  Company Number: CA-002147023-NVSC2024CA018215

PATIENT
  Sex: Female

DRUGS (1)
  1. AIMOVIG [Suspect]
     Active Substance: ERENUMAB-AOOE
     Indication: Migraine
     Dosage: 70 MG, CYCLIC (28 DAYS CYCLE)
     Route: 065
     Dates: start: 20210322

REACTIONS (2)
  - Concussion [Unknown]
  - Migraine [Unknown]

NARRATIVE: CASE EVENT DATE: 20231001
